FAERS Safety Report 10009196 (Version 2)
Quarter: 2015Q3

REPORT INFORMATION
  Report Type: Spontaneous
  Country: US (occurrence: US)
  Receive Date: 20140313
  Receipt Date: 20150814
  Transmission Date: 20151125
  Serious: No
  Sender: FDA-Public Use
  Company Number: US-GILEAD-2013-0072528

PATIENT
  Age: 57 Year
  Sex: Female

DRUGS (16)
  1. LETAIRIS [Suspect]
     Active Substance: AMBRISENTAN
     Indication: PULMONARY HYPERTENSION
     Dosage: 5 MG, QD
     Route: 048
     Dates: start: 20130103
  2. REPREXAIN [Concomitant]
     Active Substance: HYDROCODONE BITARTRATE\IBUPROFEN
  3. VICODIN [Concomitant]
     Active Substance: ACETAMINOPHEN\HYDROCODONE BITARTRATE
  4. LASIX [Concomitant]
     Active Substance: FUROSEMIDE
  5. LOVAZA [Concomitant]
     Active Substance: OMEGA-3-ACID ETHYL ESTERS
  6. HYDROMORPHONE [Concomitant]
     Active Substance: HYDROMORPHONE
  7. QVAR [Concomitant]
     Active Substance: BECLOMETHASONE DIPROPIONATE
  8. PEG                                /01543001/ [Concomitant]
     Active Substance: PEGINTERFERON ALFA-2B
  9. DIGOXIN. [Concomitant]
     Active Substance: DIGOXIN
  10. PANTOPRAZOLE [Concomitant]
     Active Substance: PANTOPRAZOLE SODIUM
  11. ACUVAIL [Concomitant]
     Active Substance: KETOROLAC TROMETHAMINE
  12. SPIRIVA [Concomitant]
     Active Substance: TIOTROPIUM BROMIDE MONOHYDRATE
  13. SILDENAFIL. [Concomitant]
     Active Substance: SILDENAFIL
  14. AMIODARONE [Concomitant]
     Active Substance: AMIODARONE
  15. PRAVASTATIN [Concomitant]
     Active Substance: PRAVASTATIN\PRAVASTATIN SODIUM
  16. CARVEDILOL. [Concomitant]
     Active Substance: CARVEDILOL

REACTIONS (7)
  - Oxygen consumption increased [Unknown]
  - Chest pain [Unknown]
  - Exercise tolerance decreased [Unknown]
  - Constipation [Unknown]
  - Anxiety [Unknown]
  - Fear [Unknown]
  - Headache [Unknown]
